FAERS Safety Report 5392818-6 (Version None)
Quarter: 2007Q3

REPORT INFORMATION
  Report Type: 
  Country: None (occurrence: None)
  Receive Date: 20070720
  Receipt Date: 20070709
  Transmission Date: 20080115
  Serious: Yes (Life-Threatening)
  Sender: FDA-Public Use
  Company Number: PFIZER INC-2007055480

PATIENT
  Sex: Male

DRUGS (4)
  1. ZYVOX [Suspect]
     Indication: STAPHYLOCOCCAL INFECTION
     Dosage: DAILY DOSE:600MG-FREQ:DAILY
     Route: 042
     Dates: start: 20070112, end: 20070113
  2. MEROPENEM [Concomitant]
     Dosage: DAILY DOSE:3GRAM
     Route: 042
     Dates: start: 20070111, end: 20070116
  3. NEXIUM [Concomitant]
     Dosage: DAILY DOSE:40MG
     Route: 051
     Dates: start: 20061224, end: 20070116
  4. DOPAMINE HCL [Concomitant]
     Dosage: TEXT:5-10 MCG/KG
     Route: 042
     Dates: start: 20070111, end: 20070116

REACTIONS (1)
  - TOXIC EPIDERMAL NECROLYSIS [None]
